FAERS Safety Report 15776220 (Version 1)
Quarter: 2018Q4

REPORT INFORMATION
  Report Type: Spontaneous
  Country: US (occurrence: US)
  Receive Date: 20181224
  Receipt Date: 20181224
  Transmission Date: 20190205
  Serious: No
  Sender: FDA-Public Use
  Company Number: None

PATIENT

DRUGS (2)
  1. METOPROLOL SUCCINATE. [Suspect]
     Active Substance: METOPROLOL SUCCINATE
  2. METOPROLOL TARTRATE. [Suspect]
     Active Substance: METOPROLOL TARTRATE

REACTIONS (9)
  - Vertigo [None]
  - Cardiac disorder [None]
  - Product dispensing error [None]
  - Dyspnoea [None]
  - Migraine [None]
  - Fatigue [None]
  - Heart rate increased [None]
  - Headache [None]
  - Nausea [None]
